FAERS Safety Report 4497220-7 (Version None)
Quarter: 2004Q3

REPORT INFORMATION
  Report Type: 
  Country: None (occurrence: None)
  Receive Date: 20040927
  Receipt Date: 20040603
  Transmission Date: 20050211
  Serious: No
  Sender: FDA-Public Use
  Company Number: USA040568739

PATIENT
  Age: 10 Year
  Sex: Male

DRUGS (2)
  1. STRATTERA [Suspect]
     Dosage: 25 MG DAY
     Dates: start: 20040506, end: 20040520
  2. CONCERTA [Concomitant]

REACTIONS (3)
  - MEMORY IMPAIRMENT [None]
  - NEGATIVISM [None]
  - PERSONALITY CHANGE [None]
